FAERS Safety Report 15489349 (Version 2)
Quarter: 2019Q2

REPORT INFORMATION
  Report Type: Spontaneous
  Country: HR (occurrence: HR)
  Receive Date: 20181011
  Receipt Date: 20190429
  Transmission Date: 20190711
  Serious: Yes (Other)
  Sender: FDA-Public Use
  Company Number: HR-JNJFOC-20181007725

PATIENT
  Age: 22 Year
  Sex: Male

DRUGS (10)
  1. XEPLION [Suspect]
     Active Substance: PALIPERIDONE PALMITATE
     Indication: DRUG DEPENDENCE
     Route: 030
     Dates: start: 20180828, end: 20180828
  2. XEPLION [Suspect]
     Active Substance: PALIPERIDONE PALMITATE
     Indication: PSYCHOTIC DISORDER
     Route: 030
     Dates: start: 20180926
  3. XEPLION [Suspect]
     Active Substance: PALIPERIDONE PALMITATE
     Indication: PERSONALITY DISORDER
     Route: 030
     Dates: start: 20180926
  4. XEPLION [Suspect]
     Active Substance: PALIPERIDONE PALMITATE
     Indication: DRUG DEPENDENCE
     Route: 030
     Dates: start: 20180926
  5. XEPLION [Suspect]
     Active Substance: PALIPERIDONE PALMITATE
     Indication: PSYCHOTIC DISORDER
     Route: 030
     Dates: start: 20180821, end: 20180821
  6. XEPLION [Suspect]
     Active Substance: PALIPERIDONE PALMITATE
     Indication: PERSONALITY DISORDER
     Route: 030
     Dates: start: 20180821, end: 20180821
  7. XEPLION [Suspect]
     Active Substance: PALIPERIDONE PALMITATE
     Indication: PERSONALITY DISORDER
     Route: 030
     Dates: start: 20180828, end: 20180828
  8. XEPLION [Suspect]
     Active Substance: PALIPERIDONE PALMITATE
     Indication: DRUG DEPENDENCE
     Route: 030
     Dates: start: 20180821, end: 20180821
  9. XEPLION [Suspect]
     Active Substance: PALIPERIDONE PALMITATE
     Indication: PSYCHOTIC DISORDER
     Route: 030
     Dates: start: 20180828, end: 20180828
  10. NORMABEL [Concomitant]
     Active Substance: DIAZEPAM
     Dosage: IF NEEDED
     Route: 065

REACTIONS (4)
  - Tachycardia [Recovered/Resolved]
  - Dystonia [Recovered/Resolved]
  - Oculogyric crisis [Recovered/Resolved]
  - Leukocytosis [Recovered/Resolved]

NARRATIVE: CASE EVENT DATE: 20180926
